FAERS Safety Report 8404842-7 (Version None)
Quarter: 2012Q2

REPORT INFORMATION
  Report Type: 
  Country: None (occurrence: None)
  Receive Date: 20120601
  Receipt Date: 20120523
  Transmission Date: 20120825
  Serious: Yes (Other)
  Sender: FDA-Public Use
  Company Number: US-ASTRAZENECA-2012SE33071

PATIENT
  Age: 38 Year
  Sex: Male
  Weight: 104.3 kg

DRUGS (2)
  1. SEROQUEL XR [Suspect]
     Indication: BIPOLAR DISORDER
     Route: 048
     Dates: start: 20080101
  2. NEURONTIN [Suspect]
     Route: 065

REACTIONS (11)
  - SPINAL COLUMN STENOSIS [None]
  - THORACIC VERTEBRAL FRACTURE [None]
  - ACCIDENT [None]
  - WITHDRAWAL SYNDROME [None]
  - WEIGHT INCREASED [None]
  - PENILE HAEMORRHAGE [None]
  - URINARY RETENTION [None]
  - DEPRESSED MOOD [None]
  - TACHYPHRENIA [None]
  - VISION BLURRED [None]
  - DRUG DOSE OMISSION [None]
